FAERS Safety Report 7107368-6 (Version None)
Quarter: 2010Q4

REPORT INFORMATION
  Report Type: 
  Country: None (occurrence: None)
  Receive Date: 20101111
  Receipt Date: 20101111
  Transmission Date: 20110411
  Serious: Yes (Hospitalization)
  Sender: FDA-Public Use
  Company Number: None

PATIENT
  Age: 62 Year
  Sex: Female
  Weight: 61 kg

DRUGS (1)
  1. HUMAN SYNTHETIC SECRETIN 12.2 MCG CHIRHOCLIN [Suspect]
     Indication: EXOCRINE PANCREATIC FUNCTION TEST ABNORMAL
     Dosage: 12.2 MCG X 1 IV
     Route: 042
     Dates: start: 20100527

REACTIONS (1)
  - PANCREATITIS ACUTE [None]
